FAERS Safety Report 7013763-6 (Version None)
Quarter: 2010Q3

REPORT INFORMATION
  Report Type: 
  Country: None (occurrence: None)
  Receive Date: 20100924
  Receipt Date: 20100914
  Transmission Date: 20110219
  Serious: Yes (Other)
  Sender: FDA-Public Use
  Company Number: PHHY2010CA60078

PATIENT
  Sex: Female

DRUGS (1)
  1. ACLASTA [Suspect]
     Dosage: 5MG/100ML, ONCE IN A YEAR
     Route: 042
     Dates: start: 20080101

REACTIONS (3)
  - SENSITIVITY OF TEETH [None]
  - TOOTH INFECTION [None]
  - TOOTHACHE [None]
